FAERS Safety Report 7479527-4 (Version None)
Quarter: 2011Q2

REPORT INFORMATION
  Report Type: 
  Country: None (occurrence: None)
  Receive Date: 20110513
  Receipt Date: 20110506
  Transmission Date: 20111010
  Serious: Yes (Other)
  Sender: FDA-Public Use
  Company Number: JP-ABBOTT-11P-087-0707000-00

PATIENT
  Sex: Female

DRUGS (4)
  1. HUMIRA [Suspect]
     Indication: RHEUMATOID ARTHRITIS
     Route: 058
     Dates: start: 20091126, end: 20101112
  2. METHOTREXATE [Concomitant]
     Dosage: 8 MG/WEEK
     Dates: start: 20100415, end: 20110210
  3. METHOTREXATE [Concomitant]
     Indication: PRODUCT USED FOR UNKNOWN INDICATION
     Dosage: 6 MG/WEEK
     Dates: start: 20091126, end: 20100414
  4. HUMIRA [Suspect]
     Dates: start: 20101126, end: 20110210

REACTIONS (6)
  - LIPODYSTROPHY ACQUIRED [None]
  - LIP AND/OR ORAL CAVITY CANCER [None]
  - ILL-DEFINED DISORDER [None]
  - SKIN MASS [None]
  - ERYTHEMA [None]
  - PARANASAL SINUS NEOPLASM [None]
